FAERS Safety Report 5034939-3 (Version None)
Quarter: 2006Q2

REPORT INFORMATION
  Report Type: 
  Country: None (occurrence: None)
  Receive Date: 20060622
  Receipt Date: 20060622
  Transmission Date: 20061013
  Serious: Yes (Other)
  Sender: FDA-Public Use
  Company Number: None

PATIENT
  Age: 65 Year
  Sex: Male
  Weight: 112.4921 kg

DRUGS (1)
  1. GLEEVEC [Suspect]
     Indication: GASTROINTESTINAL STROMAL TUMOUR
     Dosage: 100 MG QID PO
     Route: 048
     Dates: start: 20060105, end: 20060621

REACTIONS (3)
  - DIARRHOEA [None]
  - DYSPEPSIA [None]
  - EYELID OEDEMA [None]
